FAERS Safety Report 14609631 (Version 1)
Quarter: 2018Q1

REPORT INFORMATION
  Report Type: Spontaneous
  Country: US (occurrence: US)
  Receive Date: 20180306
  Receipt Date: 20180306
  Transmission Date: 20180509
  Serious: Yes (Other)
  Sender: FDA-Public Use
  Company Number: None

PATIENT
  Age: 36 Year
  Sex: Female

DRUGS (11)
  1. TIROSINT [Concomitant]
     Active Substance: LEVOTHYROXINE SODIUM
  2. RIZATRIPTAN. [Concomitant]
     Active Substance: RIZATRIPTAN
  3. CINGULAIR [Concomitant]
  4. TEMAZEPAM 30MG [Suspect]
     Active Substance: TEMAZEPAM
     Dosage: FREQUENCY - NIGHTLY
     Route: 048
     Dates: start: 20110609
  5. MAGNESIUM [Concomitant]
     Active Substance: MAGNESIUM
  6. PONSTEL [Concomitant]
     Active Substance: MEFENAMIC ACID
  7. FOLIC ACID. [Concomitant]
     Active Substance: FOLIC ACID
  8. TEMAZEPAM 30MG [Suspect]
     Active Substance: TEMAZEPAM
     Indication: ANXIETY
     Dosage: FREQUENCY - NIGHTLY
     Route: 048
     Dates: start: 20110528
  9. COMPOUNDED THYROID HORMONES [Concomitant]
  10. XOPENEX [Concomitant]
     Active Substance: LEVALBUTEROL HYDROCHLORIDE
  11. CYTOMEL [Concomitant]
     Active Substance: LIOTHYRONINE SODIUM

REACTIONS (5)
  - Heart rate increased [None]
  - Loss of employment [None]
  - Insomnia [None]
  - Chest discomfort [None]
  - Weight decreased [None]

NARRATIVE: CASE EVENT DATE: 20130609
